FAERS Safety Report 6217669-1 (Version None)
Quarter: 2009Q2

REPORT INFORMATION
  Report Type: 
  Country: None (occurrence: None)
  Receive Date: 20090608
  Receipt Date: 20090530
  Transmission Date: 20091009
  Serious: No
  Sender: FDA-Public Use
  Company Number: US-B.I. PHARMACEUTICALS,INC./RIDGEFIELD-2009-BP-06699BP

PATIENT
  Age: 32 Year
  Sex: Male

DRUGS (1)
  1. ZANTAC 150 [Suspect]
     Dosage: 150MG
     Dates: start: 20090530

REACTIONS (1)
  - FLATULENCE [None]
